FAERS Safety Report 11746906 (Version 1)
Quarter: 2015Q4

REPORT INFORMATION
  Report Type: Spontaneous
  Country: US (occurrence: None)
  Receive Date: 20151116
  Receipt Date: 20151116
  Transmission Date: 20160304
  Serious: No
  Sender: FDA-Public Use
  Company Number: None

PATIENT
  Age: 70 Year
  Sex: Female

DRUGS (1)
  1. IBRANCE [Suspect]
     Active Substance: PALBOCICLIB
     Dosage: 125MG DAILY FOR 21 DAYS, OFF FOR 7 BY MOUTH
     Route: 048
     Dates: start: 20150603

REACTIONS (3)
  - Diarrhoea [None]
  - Palpitations [None]
  - Pain in extremity [None]

NARRATIVE: CASE EVENT DATE: 20150630
